FAERS Safety Report 9617730 (Version 1)
Quarter: 2013Q4

REPORT INFORMATION
  Report Type: Spontaneous
  Country: None (occurrence: None)
  Receive Date: 20131009
  Receipt Date: 20131009
  Transmission Date: 20140711
  Serious: Yes (Other)
  Sender: FDA-Public Use
  Company Number: IPC201309-000380

PATIENT
  Age: 64 Year
  Sex: Male

DRUGS (3)
  1. METFORMIN HYDROCHLORIDE (METFORMIN HYDROCHLORIDE) (METFORMIN HYDROCHLORIDE) [Suspect]
     Indication: TYPE 2 DIABETES MELLITUS
     Route: 048
  2. LERCANIDIPINE-HCT(LERCANIDIPINE)(LERCANIDIPINE) [Concomitant]
  3. SILVER [Concomitant]

REACTIONS (8)
  - Decreased appetite [None]
  - Vomiting [None]
  - Nausea [None]
  - Diarrhoea [None]
  - Heart rate increased [None]
  - Chest pain [None]
  - Muscle spasms [None]
  - Hyperhidrosis [None]
